FAERS Safety Report 23754587 (Version 2)
Quarter: 2024Q2

REPORT INFORMATION
  Report Type: Spontaneous
  Country: IT (occurrence: IT)
  Receive Date: 20240418
  Receipt Date: 20240619
  Transmission Date: 20240716
  Serious: Yes (Hospitalization)
  Sender: FDA-Public Use
  Company Number: IT-002147023-NVSC2024IT071013

PATIENT
  Age: 18 Year
  Sex: Male

DRUGS (8)
  1. BASILIXIMAB [Suspect]
     Active Substance: BASILIXIMAB
     Indication: Immunosuppressant drug therapy
     Dosage: UNK
     Route: 065
  2. MYCOPHENOLATE MOFETIL [Suspect]
     Active Substance: MYCOPHENOLATE MOFETIL
     Indication: Immunosuppressant drug therapy
     Dosage: 500-750?MG/DAY
     Route: 065
  3. MYCOPHENOLATE MOFETIL [Suspect]
     Active Substance: MYCOPHENOLATE MOFETIL
     Dosage: RECEIVED 500-750?MG/DAY
     Route: 065
  4. LEVOCARNITINE [Concomitant]
     Active Substance: LEVOCARNITINE
     Indication: Methylmalonic acidaemia
     Dosage: 100 MG/KG, QD
     Route: 065
  5. LEVOCARNITINE [Concomitant]
     Active Substance: LEVOCARNITINE
     Indication: Metabolic disorder
  6. LEVOCARNITINE [Concomitant]
     Active Substance: LEVOCARNITINE
     Indication: Methylmalonic acidaemia
  7. LEVOCARNITINE [Concomitant]
     Active Substance: LEVOCARNITINE
     Indication: Methylmalonic acidaemia
  8. TACROLIMUS [Concomitant]
     Active Substance: TACROLIMUS
     Indication: Immunosuppressant drug therapy
     Dosage: 2.5-3 MG/DAY WITH SERUM LEVELS RANGING FROM 5 TO 7 NG/ML
     Route: 065

REACTIONS (2)
  - Seizure [Recovered/Resolved]
  - Syncope [Unknown]
